FAERS Safety Report 13689692 (Version 1)
Quarter: 2017Q2

REPORT INFORMATION
  Report Type: Spontaneous
  Country: US (occurrence: US)
  Receive Date: 20170623
  Receipt Date: 20170623
  Transmission Date: 20170830
  Serious: Yes (Life-Threatening, Hospitalization, Other)
  Sender: FDA-Public Use
  Company Number: None

PATIENT
  Age: 27 Year
  Sex: Male
  Weight: 70 kg

DRUGS (1)
  1. AKURIT [Suspect]
     Active Substance: ISONIAZID\RIFAMPIN
     Indication: TUBERCULOSIS
     Route: 048

REACTIONS (20)
  - Flushing [None]
  - Gait disturbance [None]
  - Vomiting [None]
  - White blood cell count decreased [None]
  - Rash [None]
  - Muscular weakness [None]
  - Confusional state [None]
  - Nausea [None]
  - Inflammation [None]
  - Pain in extremity [None]
  - Red blood cell count decreased [None]
  - Abdominal discomfort [None]
  - Pruritus [None]
  - Chromaturia [None]
  - Diarrhoea [None]
  - Disturbance in attention [None]
  - Hyperhidrosis [None]
  - Decreased appetite [None]
  - Fatigue [None]
  - Somnolence [None]

NARRATIVE: CASE EVENT DATE: 20170606
